FAERS Safety Report 18135510 (Version 1)
Quarter: 2020Q3

REPORT INFORMATION
  Report Type: Spontaneous
  Country: US (occurrence: US)
  Receive Date: 20200810
  Receipt Date: 20200810
  Transmission Date: 20201103
  Serious: Yes (Disabling)
  Sender: FDA-Public Use
  Company Number: None

PATIENT
  Age: 60 Year
  Sex: Male
  Weight: 144 kg

DRUGS (9)
  1. LATANOPROST. [Concomitant]
     Active Substance: LATANOPROST
  2. VITAMIN D [Concomitant]
     Active Substance: VITAMIN D NOS
  3. SIRUINI HAND SANITIZER [Suspect]
     Active Substance: ALCOHOL
     Indication: COVID-19 PROPHYLAXIS
     Route: 061
     Dates: start: 20200710, end: 20200804
  4. ATORVASTATIN [Concomitant]
     Active Substance: ATORVASTATIN
  5. MILK THISTLE [Concomitant]
     Active Substance: DIETARY SUPPLEMENT\HERBALS\MILK THISTLE
  6. NADADOL [Concomitant]
  7. SYNTHROID [Concomitant]
     Active Substance: LEVOTHYROXINE SODIUM
  8. BACLOFEN. [Concomitant]
     Active Substance: BACLOFEN
  9. SAM?E [Concomitant]
     Active Substance: ADEMETIONINE

REACTIONS (4)
  - Product formulation issue [None]
  - Physical product label issue [None]
  - Vision blurred [None]
  - Product quality issue [None]

NARRATIVE: CASE EVENT DATE: 20200710
